FAERS Safety Report 5867122-X (Version None)
Quarter: 2008Q3

REPORT INFORMATION
  Report Type: 
  Country: None (occurrence: None)
  Receive Date: 20080828
  Receipt Date: 20080828
  Transmission Date: 20090109
  Serious: Yes (Other)
  Sender: FDA-Public Use
  Company Number: None

PATIENT
  Sex: Male

DRUGS (1)
  1. LIPITOR [Suspect]
     Indication: HYPERLIPIDAEMIA
     Dosage: 10MG DAILY PO
     Route: 048
     Dates: start: 20080109, end: 20080425

REACTIONS (2)
  - MUSCLE SPASMS [None]
  - MYALGIA [None]
